FAERS Safety Report 9669992 (Version 2)
Quarter: 2013Q4

REPORT INFORMATION
  Report Type: Report from Study
  Country: FR (occurrence: FR)
  Receive Date: 20131105
  Receipt Date: 20131221
  Transmission Date: 20140711
  Serious: Yes (Hospitalization)
  Sender: FDA-Public Use
  Company Number: FR-UCBSA-101928

PATIENT
  Age: 48 Year
  Sex: Male
  Weight: 67 kg

DRUGS (10)
  1. CIMZIA [Suspect]
     Indication: RHEUMATOID ARTHRITIS
     Route: 058
     Dates: start: 20130601, end: 20130918
  2. CIMZIA [Suspect]
     Indication: RHEUMATOID ARTHRITIS
     Route: 058
     Dates: start: 20130417, end: 20130530
  3. IMETH [Concomitant]
     Indication: RHEUMATOID ARTHRITIS
     Dosage: 2 TABLETS
     Route: 048
  4. SPECIAFOLDINE [Concomitant]
     Indication: RHEUMATOID ARTHRITIS
     Route: 048
  5. CORTANCYL [Concomitant]
     Indication: RHEUMATOID ARTHRITIS
     Route: 048
  6. CORTANCYL [Concomitant]
     Indication: RHEUMATOID ARTHRITIS
     Route: 048
  7. CORTANCYL [Concomitant]
     Indication: RHEUMATOID ARTHRITIS
     Route: 048
  8. METHOTREXATE [Concomitant]
     Indication: RHEUMATOID ARTHRITIS
     Route: 058
  9. UVEDOSE [Concomitant]
     Dosage: UNKNOWN
  10. LAMALINE [Concomitant]
     Dosage: UNKNOWN

REACTIONS (4)
  - Pustular psoriasis [Not Recovered/Not Resolved]
  - Nail candida [Not Recovered/Not Resolved]
  - Dermatophytosis [Not Recovered/Not Resolved]
  - Osteitis [Not Recovered/Not Resolved]
